FAERS Safety Report 16078906 (Version 2)
Quarter: 2019Q3

REPORT INFORMATION
  Report Type: Report from Study
  Country: IT (occurrence: IT)
  Receive Date: 20190315
  Receipt Date: 20190801
  Transmission Date: 20191004
  Serious: Yes (Other)
  Sender: FDA-Public Use
  Company Number: IT-EISAI MEDICAL RESEARCH-EC-2019-053181

PATIENT
  Age: 15 Year
  Sex: Female
  Weight: 38 kg

DRUGS (23)
  1. ACETYLCYSTEINE. [Concomitant]
     Active Substance: ACETYLCYSTEINE
  2. LENVATINIB [Suspect]
     Active Substance: LENVATINIB
     Route: 048
     Dates: start: 20181127, end: 20181206
  3. FILGRASTIM [Concomitant]
     Active Substance: FILGRASTIM
  4. ONDANSETRON [Concomitant]
     Active Substance: ONDANSETRON
  5. LENVATINIB [Suspect]
     Active Substance: LENVATINIB
     Indication: OSTEOSARCOMA
     Route: 048
     Dates: start: 20181030, end: 20181107
  6. IFOSFAMIDE. [Suspect]
     Active Substance: IFOSFAMIDE
     Route: 041
     Dates: start: 20190111, end: 20190113
  7. ETOPOSIDE. [Suspect]
     Active Substance: ETOPOSIDE
     Indication: OSTEOSARCOMA
     Route: 041
     Dates: start: 20181030, end: 20181101
  8. ETOPOSIDE. [Suspect]
     Active Substance: ETOPOSIDE
     Route: 041
     Dates: start: 20181220, end: 20181222
  9. IFOSFAMIDE. [Suspect]
     Active Substance: IFOSFAMIDE
     Route: 041
     Dates: start: 20181127, end: 20181129
  10. ETOPOSIDE. [Suspect]
     Active Substance: ETOPOSIDE
     Route: 041
     Dates: start: 20190111, end: 20190113
  11. RANITIDINE. [Concomitant]
     Active Substance: RANITIDINE
  12. LENVATINIB [Suspect]
     Active Substance: LENVATINIB
     Route: 048
     Dates: start: 20181220, end: 20181228
  13. ETOPOSIDE. [Suspect]
     Active Substance: ETOPOSIDE
     Route: 041
     Dates: start: 20181127, end: 20181129
  14. ETOPOSIDE. [Suspect]
     Active Substance: ETOPOSIDE
     Dosage: UNKNOWN
     Route: 041
     Dates: start: 20190207, end: 20190209
  15. IFOSFAMIDE. [Suspect]
     Active Substance: IFOSFAMIDE
     Indication: OSTEOSARCOMA
     Route: 041
     Dates: start: 20181030, end: 20181101
  16. TRIPTORELIN [Concomitant]
     Active Substance: TRIPTORELIN
  17. LENVATINIB [Suspect]
     Active Substance: LENVATINIB
     Route: 048
     Dates: start: 20190111, end: 20190120
  18. LENVATINIB [Suspect]
     Active Substance: LENVATINIB
     Route: 048
     Dates: start: 20190207, end: 20190215
  19. IFOSFAMIDE. [Suspect]
     Active Substance: IFOSFAMIDE
     Dosage: UNKNOWN
     Route: 041
     Dates: start: 20190207, end: 20190209
  20. IFOSFAMIDE. [Suspect]
     Active Substance: IFOSFAMIDE
     Route: 041
     Dates: start: 20181220, end: 20181222
  21. GABAPENTIN. [Concomitant]
     Active Substance: GABAPENTIN
  22. ENOXAPARIN SODIUM. [Concomitant]
     Active Substance: ENOXAPARIN SODIUM
  23. URSODEOXYCHOLIC ACID [Concomitant]
     Active Substance: URSODIOL

REACTIONS (3)
  - Platelet count decreased [Recovered/Resolved]
  - White blood cell count decreased [Recovered/Resolved]
  - Neutrophil count decreased [Recovered/Resolved]

NARRATIVE: CASE EVENT DATE: 20181108
